FAERS Safety Report 7880158-2 (Version None)
Quarter: 2011Q4

REPORT INFORMATION
  Report Type: 
  Country: None (occurrence: None)
  Receive Date: 20111101
  Receipt Date: 20111025
  Transmission Date: 20120403
  Serious: No
  Sender: FDA-Public Use
  Company Number: US-PFIZER INC-2011261735

PATIENT
  Sex: Male
  Weight: 81.633 kg

DRUGS (2)
  1. INSULIN [Concomitant]
     Indication: DIABETES MELLITUS
     Dosage: 70 IU, 2X/DAY
  2. VIAGRA [Suspect]
     Indication: ERECTILE DYSFUNCTION
     Dosage: UNK
     Dates: start: 20111024

REACTIONS (1)
  - DRUG INEFFECTIVE [None]
